FAERS Safety Report 13420338 (Version 1)
Quarter: 2017Q2

REPORT INFORMATION
  Report Type: Spontaneous
  Country: US (occurrence: US)
  Receive Date: 20170407
  Receipt Date: 20170407
  Transmission Date: 20170830
  Serious: Yes (Hospitalization, Other)
  Sender: FDA-Public Use
  Company Number: PHEH2017US009609

PATIENT
  Sex: Male

DRUGS (4)
  1. AMIODARONE ZYDUS [Suspect]
     Active Substance: AMIODARONE
     Indication: ATRIAL FIBRILLATION
     Route: 065
  2. AMIODARONE HYDROCHLORIDE. [Suspect]
     Active Substance: AMIODARONE HYDROCHLORIDE
     Indication: ATRIAL FIBRILLATION
     Route: 065
  3. AMIODARON HCL TEVA [Suspect]
     Active Substance: AMIODARONE HYDROCHLORIDE
     Indication: ATRIAL FIBRILLATION
     Route: 065
  4. AMIODARONE HYDROCHLORIDE. [Suspect]
     Active Substance: AMIODARONE HYDROCHLORIDE
     Indication: ATRIAL FIBRILLATION
     Route: 065

REACTIONS (19)
  - Atypical pneumonia [Unknown]
  - Heart rate irregular [Unknown]
  - Depression [Unknown]
  - Anxiety [Unknown]
  - Fatigue [Unknown]
  - Respiratory paralysis [Unknown]
  - Haemorrhage [Unknown]
  - Dyspnoea [Unknown]
  - Alveolar lung disease [Unknown]
  - Hepatic enzyme abnormal [Unknown]
  - Product use in unapproved indication [Unknown]
  - Chronic respiratory failure [Unknown]
  - Pulmonary oedema [Unknown]
  - Interstitial lung disease [Unknown]
  - Diaphragmatic paralysis [Unknown]
  - Hepatic enzyme increased [Unknown]
  - Asthenia [Unknown]
  - Cardiac failure [Unknown]
  - Thyroid function test abnormal [Unknown]

NARRATIVE: CASE EVENT DATE: 201606
